FAERS Safety Report 5231409-4 (Version None)
Quarter: 2007Q1

REPORT INFORMATION
  Report Type: 
  Country: None (occurrence: None)
  Receive Date: 20070202
  Receipt Date: 20070126
  Transmission Date: 20070707
  Serious: Yes (Death, Hospitalization)
  Sender: FDA-Public Use
  Company Number: 163-20785-07010484

PATIENT
  Sex: Male

DRUGS (1)
  1. THALOMIDE (THALIDOMIDE0 (100 MILLIGRAM, CAPSULES) [Suspect]
     Indication: MULTIPLE MYELOMA
     Dosage: 100 MG, 1 IN 1 D, ORAL
     Route: 048
     Dates: start: 20060725

REACTIONS (10)
  - ABDOMINAL PAIN [None]
  - ASTHENIA [None]
  - ATRIAL FIBRILLATION [None]
  - CORONARY ARTERY DISEASE [None]
  - DIARRHOEA [None]
  - EPISTAXIS [None]
  - HEPATIC FAILURE [None]
  - INTERNATIONAL NORMALISED RATIO ABNORMAL [None]
  - PULMONARY HYPERTENSION [None]
  - RENAL FAILURE [None]
